FAERS Safety Report 21659000 (Version 3)
Quarter: 2023Q1

REPORT INFORMATION
  Report Type: Report from Study
  Country: GB (occurrence: GB)
  Receive Date: 20221129
  Receipt Date: 20230105
  Transmission Date: 20230417
  Serious: Yes (Hospitalization)
  Sender: FDA-Public Use
  Company Number: GB-GILEAD-2022-0606565

PATIENT
  Sex: Male

DRUGS (1)
  1. SACITUZUMAB GOVITECAN [Suspect]
     Active Substance: SACITUZUMAB GOVITECAN
     Indication: Renal cancer metastatic
     Dosage: 760 MG; 3 WEEKLY D1+D8
     Route: 042
     Dates: start: 20221026, end: 20221102

REACTIONS (2)
  - Neutropenic sepsis [Recovered/Resolved]
  - Diarrhoea [Recovered/Resolved]

NARRATIVE: CASE EVENT DATE: 20221109
